FAERS Safety Report 25980717 (Version 2)
Quarter: 2025Q4

REPORT INFORMATION
  Report Type: Spontaneous
  Country: CA (occurrence: CA)
  Receive Date: 20251030
  Receipt Date: 20251107
  Transmission Date: 20260118
  Serious: No
  Sender: INTERCEPT PHARMACEUTICALS
  Company Number: CA-ADVANZ PHARMA-202411009106

PATIENT
  Age: 41 Year
  Sex: Female

DRUGS (7)
  1. OCALIVA [Suspect]
     Active Substance: OBETICHOLIC ACID
     Indication: Primary biliary cholangitis
     Dosage: 5 MG, QD(OCALIVA)
     Dates: start: 20200910
  2. OCALIVA [Suspect]
     Active Substance: OBETICHOLIC ACID
     Dosage: 10, MG, QD ONGOING
  3. URSODIOL [Concomitant]
     Active Substance: URSODIOL
     Indication: Primary biliary cholangitis
     Dosage: 2000 MG, QD
     Dates: start: 20180901
  4. URSODIOL [Concomitant]
     Active Substance: URSODIOL
     Dosage: 2000 MG, QD
  5. MIRTAZAPINE [Concomitant]
     Active Substance: MIRTAZAPINE
     Indication: Product used for unknown indication
     Dosage: UNK
  6. MIRTAZAPINE [Concomitant]
     Active Substance: MIRTAZAPINE
     Dosage: UNK
  7. MIRTAZAPINE [Concomitant]
     Active Substance: MIRTAZAPINE
     Dosage: UNK

REACTIONS (4)
  - Splenomegaly [Not Recovered/Not Resolved]
  - Hepatic enzyme increased [Unknown]
  - Asthenia [Unknown]
  - Fatigue [Unknown]
